FAERS Safety Report 6145363-4 (Version None)
Quarter: 2009Q2

REPORT INFORMATION
  Report Type: 
  Country: None (occurrence: None)
  Receive Date: 20090402
  Receipt Date: 20090324
  Transmission Date: 20091009
  Serious: Yes (Other)
  Sender: FDA-Public Use
  Company Number: 2008US002780

PATIENT
  Age: 64 Year
  Sex: Female
  Weight: 72.6 kg

DRUGS (13)
  1. VESICARE [Suspect]
     Indication: MICTURITION URGENCY
     Dosage: 5 MG, UID/QD, ORAL
     Route: 048
     Dates: start: 20080428, end: 20080503
  2. DETROL [Suspect]
     Indication: DRUG USE FOR UNKNOWN INDICATION
     Dosage: 2 MG; 4MG
  3. EFFEXOR [Concomitant]
  4. FLOVENT [Concomitant]
  5. PRILOSEC [Concomitant]
  6. SYNTRHOID(LEVOTHYROXINE SODIUM) [Concomitant]
  7. ALLEGRA [Concomitant]
  8. AMILORIDE HYDROCHLORIDE [Concomitant]
  9. OS-CAL [Concomitant]
  10. VERELAN [Concomitant]
  11. MULTIVITAMIN [Concomitant]
  12. FISH OIL [Concomitant]
  13. GLUCOSAMINE + CHONDROITIN (GLUCOSAMINE, CHONDROITIN SULFATE) [Concomitant]

REACTIONS (3)
  - ASTHENIA [None]
  - DIZZINESS [None]
  - NODAL RHYTHM [None]
